FAERS Safety Report 6905152-7 (Version None)
Quarter: 2010Q3

REPORT INFORMATION
  Report Type: 
  Country: None (occurrence: None)
  Receive Date: 20100804
  Receipt Date: 20100510
  Transmission Date: 20110219
  Serious: Yes (Hospitalization)
  Sender: FDA-Public Use
  Company Number: US-PFIZER INC-2008049294

PATIENT
  Sex: Female

DRUGS (9)
  1. LYRICA [Suspect]
     Indication: DIABETIC NEUROPATHY
     Dosage: 100 MG, 3X/DAY
     Route: 048
     Dates: start: 20080525, end: 20080606
  2. ATENOLOL [Concomitant]
     Dosage: UNK
  3. ZOCOR [Concomitant]
     Dosage: UNK
  4. PRILOSEC [Concomitant]
     Dosage: UNK
  5. VALSARTAN [Concomitant]
     Dosage: UNK
  6. LEVOTHYROXINE [Concomitant]
     Dosage: UNK
  7. WARFARIN [Concomitant]
     Dosage: UNK
  8. XALATAN [Concomitant]
     Dosage: UNK
  9. BETOPTIC [Concomitant]
     Dosage: UNK

REACTIONS (1)
  - RHABDOMYOLYSIS [None]
